FAERS Safety Report 5455083-7 (Version None)
Quarter: 2007Q3

REPORT INFORMATION
  Report Type: 
  Country: None (occurrence: None)
  Receive Date: 20070913
  Receipt Date: 20070820
  Transmission Date: 20080115
  Serious: Yes (Life-Threatening)
  Sender: FDA-Public Use
  Company Number: 6037149

PATIENT
  Age: 25 Year
  Sex: Male

DRUGS (4)
  1. CARBAMAZEPINE [Suspect]
     Indication: BORDERLINE PERSONALITY DISORDER
     Dosage: (20 GM)
  2. PAROXETINE [Suspect]
     Indication: BORDERLINE PERSONALITY DISORDER
     Dosage: (400 MG)
  3. LITHIUM CARBONATE [Concomitant]
  4. RISPERIDONE [Concomitant]

REACTIONS (11)
  - BEZOAR [None]
  - COMA [None]
  - CONVULSION [None]
  - GRAND MAL CONVULSION [None]
  - HYPONATRAEMIA [None]
  - MULTIPLE DRUG OVERDOSE INTENTIONAL [None]
  - PNEUMONIA ASPIRATION [None]
  - PNEUMONIA BACTERIAL [None]
  - SEPSIS [None]
  - SINUS TACHYCARDIA [None]
  - THROMBOCYTOPENIA [None]
